FAERS Safety Report 9307653 (Version 1)
Quarter: 2013Q2

REPORT INFORMATION
  Report Type: Spontaneous
  Country: US (occurrence: US)
  Receive Date: 20130524
  Receipt Date: 20130524
  Transmission Date: 20140414
  Serious: No
  Sender: FDA-Public Use
  Company Number: US-PFIZER INC-2013155358

PATIENT
  Sex: 0

DRUGS (2)
  1. VIAGRA [Suspect]
     Dosage: UNK
  2. ALCOHOL [Interacting]
     Dosage: UNK

REACTIONS (4)
  - Drug interaction [Unknown]
  - Alcohol interaction [Unknown]
  - Anxiety [Unknown]
  - Tachycardia [Unknown]
